FAERS Safety Report 19734579 (Version 3)
Quarter: 2025Q1

REPORT INFORMATION
  Report Type: Report from Study
  Country: US (occurrence: US)
  Receive Date: 20210824
  Receipt Date: 20250218
  Transmission Date: 20250408
  Serious: Yes (Hospitalization)
  Sender: ROCHE
  Company Number: US-ROCHE-2888648

PATIENT
  Age: 64 Year
  Sex: Female
  Weight: 86.18 kg

DRUGS (4)
  1. OCREVUS [Suspect]
     Active Substance: OCRELIZUMAB
     Indication: Relapsing-remitting multiple sclerosis
     Dosage: 02/APR/2021MOST RECENT, PREVIOUS DATE OF TREATMENT 9/27/2018, 10/11/2018, 3/27/2019, 9/27/2019, 3/30
     Route: 040
     Dates: start: 20180928, end: 20240909
  2. BACLOFEN [Concomitant]
     Active Substance: BACLOFEN
     Indication: Neuralgia
     Dosage: STARTED BEFORE OCREVUS ;
     Route: 048
  3. MELOXICAM [Concomitant]
     Active Substance: MELOXICAM
     Indication: Pain
     Dosage: STARTED BEFORE OCREVUS ; STARTED ABOUT 7 YEARS AGO
     Route: 048
  4. TOLTERODINE TARTRATE [Concomitant]
     Active Substance: TOLTERODINE TARTRATE
     Indication: Urinary incontinence
     Dosage: TAKING FOR ABOUT 20 YEARS,
     Route: 048

REACTIONS (3)
  - COVID-19 [Recovered/Resolved]
  - Alopecia [Not Recovered/Not Resolved]
  - Cough [Not Recovered/Not Resolved]

NARRATIVE: CASE EVENT DATE: 20210101
